FAERS Safety Report 7475781-3 (Version None)
Quarter: 2011Q2

REPORT INFORMATION
  Report Type: 
  Country: None (occurrence: None)
  Receive Date: 20110512
  Receipt Date: 20110502
  Transmission Date: 20111010
  Serious: Yes (Hospitalization, Other)
  Sender: FDA-Public Use
  Company Number: US-AMGEN-USASP2011018037

PATIENT
  Age: 52 Year
  Sex: Male
  Weight: 102.49 kg

DRUGS (8)
  1. ASPIRIN [Concomitant]
     Dosage: 325 MG, QD
  2. CALCIUM +D                         /00188401/ [Concomitant]
     Dosage: UNK UNK, BID
  3. PREDNISONE [Concomitant]
     Dosage: 5 MG, PRN
  4. CELEBREX [Concomitant]
     Dosage: 200 MG, QD
     Route: 048
  5. METHOTREXATE [Concomitant]
     Dosage: UNK
     Dates: end: 20100801
  6. ENBREL [Suspect]
     Indication: RHEUMATOID ARTHRITIS
     Dosage: 50 MG, QWK
     Route: 058
     Dates: start: 20100701, end: 20110221
  7. FOLIC ACID [Concomitant]
     Dosage: 1 MG, BID
     Route: 048
  8. FISH OIL [Concomitant]
     Dosage: 1000 MG, BID
     Route: 048

REACTIONS (13)
  - TREMOR [None]
  - NEPHROLITHIASIS [None]
  - LOSS OF CONSCIOUSNESS [None]
  - ASTHENIA [None]
  - MOBILITY DECREASED [None]
  - FALL [None]
  - HYPERSENSITIVITY [None]
  - PARAESTHESIA [None]
  - APHASIA [None]
  - GAIT DISTURBANCE [None]
  - HYPOAESTHESIA [None]
  - HEPATIC STEATOSIS [None]
  - MALAISE [None]
